FAERS Safety Report 20567391 (Version 1)
Quarter: 2022Q1

REPORT INFORMATION
  Report Type: Spontaneous
  Country: CH (occurrence: CH)
  Receive Date: 20220308
  Receipt Date: 20220308
  Transmission Date: 20220424
  Serious: Yes (Hospitalization)
  Sender: FDA-Public Use
  Company Number: CH-MYLANLABS-2022M1017831

PATIENT
  Age: 75 Year
  Sex: Male

DRUGS (3)
  1. FONDAPARINUX [Suspect]
     Active Substance: FONDAPARINUX
     Indication: Peripheral ischaemia
     Dosage: UNK
     Route: 065
  2. ALTEPLASE [Concomitant]
     Active Substance: ALTEPLASE
     Indication: Peripheral ischaemia
     Dosage: 1 MILLIGRAM, QH
     Route: 065
  3. ALTEPLASE [Concomitant]
     Active Substance: ALTEPLASE
     Dosage: 0.5 MILLIGRAM, QH
     Route: 065

REACTIONS (1)
  - Cross sensitivity reaction [Unknown]
